FAERS Safety Report 6697430-4 (Version None)
Quarter: 2010Q2

REPORT INFORMATION
  Report Type: 
  Country: None (occurrence: None)
  Receive Date: 20100422
  Receipt Date: 20100412
  Transmission Date: 20101027
  Serious: Yes (Hospitalization)
  Sender: FDA-Public Use
  Company Number: 1000013154

PATIENT
  Age: 91 Year
  Sex: Female
  Weight: 56.246 kg

DRUGS (8)
  1. MEMANTINE HCL [Suspect]
     Indication: DEMENTIA ALZHEIMER'S TYPE
     Dosage: 20 MG (10 MG, 2 IN 1 D), ORAL
     Route: 048
     Dates: start: 20080531
  2. ACTONEL [Concomitant]
  3. ARICEPT [Concomitant]
  4. CELEBREX [Concomitant]
  5. HYDROXYUREA [Concomitant]
  6. LEVOTHYROXINE [Concomitant]
  7. MVI WITH FOLIC ACID [Concomitant]
  8. ASPIRIN [Concomitant]

REACTIONS (4)
  - BILE DUCT OBSTRUCTION [None]
  - CHOLELITHIASIS [None]
  - PANCREATITIS [None]
  - WOUND DRAINAGE [None]
